FAERS Safety Report 19847670 (Version 1)
Quarter: 2021Q3

REPORT INFORMATION
  Report Type: Report from Study
  Country: FR (occurrence: FR)
  Receive Date: 20210917
  Receipt Date: 20210917
  Transmission Date: 20211014
  Serious: Yes (Hospitalization)
  Sender: FDA-Public Use
  Company Number: FR-SERVIER-S20006987

PATIENT

DRUGS (7)
  1. TN UNSPECIFIED [Concomitant]
     Indication: ACUTE LYMPHOCYTIC LEUKAEMIA
     Dosage: 10 MG, ON D4
     Route: 037
     Dates: start: 20200420
  2. TN UNSPECIFIED [Concomitant]
     Indication: ACUTE LYMPHOCYTIC LEUKAEMIA
     Dosage: 25 MG , ON D4
     Route: 037
     Dates: start: 20200420
  3. PEGASPARGASE [Suspect]
     Active Substance: PEGASPARGASE
     Indication: ACUTE LYMPHOCYTIC LEUKAEMIA
     Dosage: 1350 IU, ON D4
     Route: 042
     Dates: start: 20200420
  4. TN UNSPECIFIED [Concomitant]
     Indication: ACUTE LYMPHOCYTIC LEUKAEMIA
     Dosage: 14 MG, ON D1, D8, D15
     Route: 042
     Dates: start: 20200417, end: 20200430
  5. TN NSPECIFIED [DEXAMETHASONE PHOSPHATE] [Suspect]
     Active Substance: DEXAMETHASONE PHOSPHATE
     Indication: ACUTE LYMPHOCYTIC LEUKAEMIA
     Dosage: 5.5 MG  FROM D1 TO D7 AND D15 TO D21
     Route: 048
     Dates: start: 20200417, end: 20200506
  6. TN UNSPECIFIED [Concomitant]
     Indication: ACUTE LYMPHOCYTIC LEUKAEMIA
     Dosage: 0.8 MG, D1 D8, D15
     Route: 042
     Dates: start: 20200417
  7. TN NSPECIFIED [Concomitant]
     Indication: ACUTE LYMPHOCYTIC LEUKAEMIA
     Dosage: 12 MG, ON D4
     Route: 037
     Dates: start: 20200420

REACTIONS (2)
  - Mucormycosis [Recovered/Resolved]
  - Sepsis [Recovered/Resolved]

NARRATIVE: CASE EVENT DATE: 20200515
